FAERS Safety Report 9207915 (Version 1)
Quarter: 2013Q2

REPORT INFORMATION
  Report Type: Spontaneous
  Country: PL (occurrence: PL)
  Receive Date: 20130403
  Receipt Date: 20130403
  Transmission Date: 20140414
  Serious: Yes (Hospitalization, Other)
  Sender: FDA-Public Use
  Company Number: PL-WATSON-2013-05252

PATIENT
  Age: 30 Year
  Sex: Female

DRUGS (2)
  1. ANAGRELIDE HYDROCHLORIDE [Suspect]
     Indication: ESSENTIAL THROMBOCYTHAEMIA
     Dosage: 2 MG, DAILY
     Route: 065
  2. PHENTERMINE [Suspect]
     Indication: WEIGHT CONTROL
     Dosage: UNKNOWN
     Route: 065

REACTIONS (1)
  - Stress cardiomyopathy [Recovered/Resolved]
